FAERS Safety Report 22995753 (Version 2)
Quarter: 2023Q4

REPORT INFORMATION
  Report Type: Spontaneous
  Country: PL (occurrence: PL)
  Receive Date: 20230927
  Receipt Date: 20231005
  Transmission Date: 20240110
  Serious: Yes (Death, Other)
  Sender: FDA-Public Use
  Company Number: PL-SANDOZ-SDZ2023PL033384

PATIENT
  Age: 49 Year
  Sex: Male

DRUGS (64)
  1. KYMRIAH [Suspect]
     Active Substance: TISAGENLECLEUCEL
     Indication: Diffuse large B-cell lymphoma
     Dosage: UNK UNK, ONCE/SINGLE
     Route: 042
     Dates: start: 20221207
  2. CYTARABINE [Suspect]
     Active Substance: CYTARABINE
     Indication: Diffuse large B-cell lymphoma
     Dosage: UNK
     Route: 065
     Dates: start: 20220607, end: 20220609
  3. CYTARABINE [Suspect]
     Active Substance: CYTARABINE
     Dosage: UNK
     Route: 065
     Dates: start: 20220702, end: 20220704
  4. DOXORUBICIN [Suspect]
     Active Substance: DOXORUBICIN
     Indication: Diffuse large B-cell lymphoma
     Dosage: UNK, 1ST CYCLE
     Route: 065
     Dates: start: 20201215, end: 20201218
  5. DOXORUBICIN [Suspect]
     Active Substance: DOXORUBICIN
     Dosage: UNK, 2ND CYCLE
     Route: 065
     Dates: start: 20210105, end: 20210106
  6. DOXORUBICIN [Suspect]
     Active Substance: DOXORUBICIN
     Dosage: UNK, 3RD CYCLE
     Route: 065
     Dates: start: 20210129, end: 20210130
  7. DOXORUBICIN [Suspect]
     Active Substance: DOXORUBICIN
     Dosage: UNK, 4TH CYCLE
     Route: 065
     Dates: start: 20210219, end: 20210220
  8. DOXORUBICIN [Suspect]
     Active Substance: DOXORUBICIN
     Dosage: UNK, 5TH CYCLE
     Route: 065
     Dates: start: 20210315, end: 20210316
  9. DOXORUBICIN [Suspect]
     Active Substance: DOXORUBICIN
     Dosage: UNK, 6TH CYCLE
     Route: 065
     Dates: start: 20210406, end: 20210407
  10. DOXORUBICIN [Suspect]
     Active Substance: DOXORUBICIN
     Dosage: UNK, 7TH CYCLE
     Route: 065
     Dates: start: 20210429
  11. DOXORUBICIN [Suspect]
     Active Substance: DOXORUBICIN
     Dosage: UNK, 8TH CYCLE
     Route: 065
     Dates: start: 20210520, end: 20210521
  12. METHOTREXATE [Suspect]
     Active Substance: METHOTREXATE
     Indication: Diffuse large B-cell lymphoma
     Dosage: UNK, 1ST CYCLE
     Route: 065
     Dates: start: 20201215, end: 20201218
  13. METHOTREXATE [Suspect]
     Active Substance: METHOTREXATE
     Dosage: UNK, 2ND CYCLE
     Route: 065
     Dates: start: 20210105, end: 20210106
  14. METHOTREXATE [Suspect]
     Active Substance: METHOTREXATE
     Dosage: UNK, 3RD CYCLE
     Route: 065
     Dates: start: 20210129, end: 20210130
  15. METHOTREXATE [Suspect]
     Active Substance: METHOTREXATE
     Dosage: UNK, 4TH CYCLE
     Route: 065
     Dates: start: 20210219, end: 20210220
  16. METHOTREXATE [Suspect]
     Active Substance: METHOTREXATE
     Dosage: UNK, 5TH CYCLE
     Route: 065
     Dates: start: 20210315, end: 20210316
  17. METHOTREXATE [Suspect]
     Active Substance: METHOTREXATE
     Dosage: UNK, 6TH CYCLE
     Route: 065
     Dates: start: 20210406, end: 20210407
  18. METHOTREXATE [Suspect]
     Active Substance: METHOTREXATE
     Dosage: UNK, 7TH CYCLE
     Route: 065
     Dates: start: 20210429
  19. METHOTREXATE [Suspect]
     Active Substance: METHOTREXATE
     Dosage: UNK, 8TH CYCLE
     Route: 065
     Dates: start: 20210520, end: 20210521
  20. CISPLATIN [Suspect]
     Active Substance: CISPLATIN
     Indication: Diffuse large B-cell lymphoma
     Dosage: UNK
     Route: 065
     Dates: start: 20220607, end: 20220609
  21. CISPLATIN [Suspect]
     Active Substance: CISPLATIN
     Dosage: UNK
     Route: 065
     Dates: start: 20220702, end: 20220704
  22. DEXAMETHASONE [Suspect]
     Active Substance: DEXAMETHASONE
     Indication: Diffuse large B-cell lymphoma
     Dosage: UNK
     Route: 065
     Dates: start: 20220607, end: 20220609
  23. DEXAMETHASONE [Suspect]
     Active Substance: DEXAMETHASONE
     Dosage: UNK
     Route: 065
     Dates: start: 20220702, end: 20220704
  24. RITUXIMAB [Suspect]
     Active Substance: RITUXIMAB
     Indication: Diffuse large B-cell lymphoma
     Dosage: UNK
     Route: 065
     Dates: start: 20220607, end: 20220609
  25. RITUXIMAB [Suspect]
     Active Substance: RITUXIMAB
     Dosage: UNK
     Route: 065
     Dates: start: 20220702, end: 20220704
  26. RITUXIMAB [Suspect]
     Active Substance: RITUXIMAB
     Dosage: UNK
     Route: 065
     Dates: start: 20220916, end: 20220918
  27. RITUXIMAB [Suspect]
     Active Substance: RITUXIMAB
     Dosage: UNK
     Route: 065
     Dates: start: 20221007, end: 20221008
  28. RITUXIMAB [Suspect]
     Active Substance: RITUXIMAB
     Dosage: UNK
     Route: 065
     Dates: start: 20221127, end: 20221129
  29. RITUXIMAB [Suspect]
     Active Substance: RITUXIMAB
     Dosage: UNK, 1ST CYCLE
     Route: 065
     Dates: start: 20201215, end: 20201218
  30. RITUXIMAB [Suspect]
     Active Substance: RITUXIMAB
     Dosage: UNK, 2ND CYCLE
     Route: 065
     Dates: start: 20210105, end: 20210106
  31. RITUXIMAB [Suspect]
     Active Substance: RITUXIMAB
     Dosage: UNK, 3RD CYCLE
     Route: 065
     Dates: start: 20210129, end: 20210130
  32. RITUXIMAB [Suspect]
     Active Substance: RITUXIMAB
     Dosage: UNK, 4TH CYCLE
     Route: 065
     Dates: start: 20210219, end: 20210220
  33. RITUXIMAB [Suspect]
     Active Substance: RITUXIMAB
     Dosage: UNK, 5TH CYCLE
     Route: 065
     Dates: start: 20210315, end: 20210316
  34. RITUXIMAB [Suspect]
     Active Substance: RITUXIMAB
     Dosage: UNK, 6TH CYCLE
     Route: 065
     Dates: start: 20210406, end: 20210407
  35. RITUXIMAB [Suspect]
     Active Substance: RITUXIMAB
     Dosage: UNK, 7TH CYCLE
     Route: 065
     Dates: start: 20210429
  36. RITUXIMAB [Suspect]
     Active Substance: RITUXIMAB
     Dosage: UNK, 8TH CYCLE
     Route: 065
     Dates: start: 20210520, end: 20210521
  37. CYCLOPHOSPHAMIDE [Suspect]
     Active Substance: CYCLOPHOSPHAMIDE
     Indication: Diffuse large B-cell lymphoma
     Dosage: UNK, 1ST CYCLE
     Route: 065
     Dates: start: 20201215, end: 20201218
  38. CYCLOPHOSPHAMIDE [Suspect]
     Active Substance: CYCLOPHOSPHAMIDE
     Dosage: UNK, 2ND CYCLE
     Route: 065
     Dates: start: 20210105, end: 20210106
  39. CYCLOPHOSPHAMIDE [Suspect]
     Active Substance: CYCLOPHOSPHAMIDE
     Dosage: UNK, 3RD CYCLE
     Route: 065
     Dates: start: 20210129, end: 20210130
  40. CYCLOPHOSPHAMIDE [Suspect]
     Active Substance: CYCLOPHOSPHAMIDE
     Dosage: UNK, 4TH CYCLE
     Route: 065
     Dates: start: 20210219, end: 20210220
  41. CYCLOPHOSPHAMIDE [Suspect]
     Active Substance: CYCLOPHOSPHAMIDE
     Dosage: UNK, 5TH CYCLE
     Route: 065
     Dates: start: 20210315, end: 20210316
  42. CYCLOPHOSPHAMIDE [Suspect]
     Active Substance: CYCLOPHOSPHAMIDE
     Dosage: UNK, 6TH CYCLE
     Route: 065
     Dates: start: 20210406, end: 20210407
  43. CYCLOPHOSPHAMIDE [Suspect]
     Active Substance: CYCLOPHOSPHAMIDE
     Dosage: UNK, 7TH CYCLE
     Route: 065
     Dates: start: 20210429
  44. CYCLOPHOSPHAMIDE [Suspect]
     Active Substance: CYCLOPHOSPHAMIDE
     Dosage: UNK, 8TH CYCLE
     Route: 065
     Dates: start: 20210520, end: 20210521
  45. VINCRISTINE [Suspect]
     Active Substance: VINCRISTINE
     Indication: Diffuse large B-cell lymphoma
     Dosage: UNK, 1ST CYCLE
     Route: 065
     Dates: start: 20201215, end: 20201218
  46. VINCRISTINE [Suspect]
     Active Substance: VINCRISTINE
     Dosage: UNK, 2ND CYCLE
     Route: 065
     Dates: start: 20210105, end: 20210106
  47. VINCRISTINE [Suspect]
     Active Substance: VINCRISTINE
     Dosage: UNK, 3RD CYCLE
     Route: 065
     Dates: start: 20210129, end: 20210130
  48. VINCRISTINE [Suspect]
     Active Substance: VINCRISTINE
     Dosage: UNK, 4THC CYCLE
     Route: 065
     Dates: start: 20210219, end: 20210220
  49. VINCRISTINE [Suspect]
     Active Substance: VINCRISTINE
     Dosage: UNK, 5TH CYCLE
     Route: 065
     Dates: start: 20210315, end: 20210316
  50. VINCRISTINE [Suspect]
     Active Substance: VINCRISTINE
     Dosage: UNK, 6TH CYCLE
     Route: 065
     Dates: start: 20210406, end: 20210407
  51. VINCRISTINE [Suspect]
     Active Substance: VINCRISTINE
     Dosage: UNK, 7TH CYCLE
     Route: 065
     Dates: start: 20210429
  52. VINCRISTINE [Suspect]
     Active Substance: VINCRISTINE
     Dosage: UNK, 8TH CYCLE
     Route: 065
     Dates: start: 20210520, end: 20210521
  53. PREDNISONE [Suspect]
     Active Substance: PREDNISONE
     Indication: Diffuse large B-cell lymphoma
     Dosage: 1ST CYCLE
     Route: 065
     Dates: start: 20201215, end: 20201218
  54. PREDNISONE [Suspect]
     Active Substance: PREDNISONE
     Dosage: 2ND CYCLE
     Route: 065
     Dates: start: 20210105, end: 20210106
  55. PREDNISONE [Suspect]
     Active Substance: PREDNISONE
     Dosage: 3RD CYCLE
     Route: 065
     Dates: start: 20210129, end: 20210130
  56. PREDNISONE [Suspect]
     Active Substance: PREDNISONE
     Dosage: 4TH CYCLE
     Route: 065
     Dates: start: 20210219, end: 20210220
  57. PREDNISONE [Suspect]
     Active Substance: PREDNISONE
     Dosage: 5TH CYCLE
     Route: 065
     Dates: start: 20210315, end: 20210316
  58. PREDNISONE [Suspect]
     Active Substance: PREDNISONE
     Dosage: 6TH CYCLE
     Route: 065
     Dates: start: 20210406, end: 20210407
  59. PREDNISONE [Suspect]
     Active Substance: PREDNISONE
     Dosage: 7TH CYCLE
     Route: 065
     Dates: start: 20210429
  60. PREDNISONE [Suspect]
     Active Substance: PREDNISONE
     Dosage: 8TH CYCLE
     Route: 065
     Dates: start: 20210520, end: 20210521
  61. POLATUZUMAB VEDOTIN [Suspect]
     Active Substance: POLATUZUMAB VEDOTIN
     Indication: Diffuse large B-cell lymphoma
     Dosage: UNK
     Route: 065
  62. BENDAMUSTINE [Suspect]
     Active Substance: BENDAMUSTINE
     Indication: Diffuse large B-cell lymphoma
     Dosage: UNK
     Route: 065
     Dates: start: 20220916, end: 20220918
  63. BENDAMUSTINE [Suspect]
     Active Substance: BENDAMUSTINE
     Dosage: UNK
     Route: 065
     Dates: start: 20221007, end: 20221008
  64. BENDAMUSTINE [Suspect]
     Active Substance: BENDAMUSTINE
     Dosage: UNK
     Route: 065
     Dates: start: 20221127, end: 20221128

REACTIONS (4)
  - Death [Fatal]
  - Diffuse large B-cell lymphoma recurrent [Unknown]
  - Thrombocytopenia [Unknown]
  - Immune effector cell-associated neurotoxicity syndrome [Recovered/Resolved]

NARRATIVE: CASE EVENT DATE: 20230408
